FAERS Safety Report 15655003 (Version 1)
Quarter: 2018Q4

REPORT INFORMATION
  Report Type: Spontaneous
  Country: BE (occurrence: BE)
  Receive Date: 20181126
  Receipt Date: 20181126
  Transmission Date: 20190205
  Serious: Yes (Other)
  Sender: FDA-Public Use
  Company Number: BE-ADIENNEP-2018AD000552

PATIENT
  Age: 16 Year
  Sex: Male

DRUGS (9)
  1. ANTITHYMOCYTE IMMUNOGLOBULIN [Suspect]
     Active Substance: THYMOCYTE IMMUNE GLOBULIN NOS
     Indication: STEM CELL TRANSPLANT
     Dosage: 2.5 MG/KG; FROM DAY -3 TO DAY -1
  2. FLUDARABINE [Suspect]
     Active Substance: FLUDARABINE PHOSPHATE
     Indication: STEM CELL TRANSPLANT
     Dosage: 30 MG/M2 DAILY; FROM DAY -7 TO DAY -3
  3. TREOSULFAN [Suspect]
     Active Substance: TREOSULFAN
     Indication: STEM CELL TRANSPLANT
     Dosage: 14000 MG/M2 DAILY; FROM DAY-7 TO DAY-5
  4. METHOTREXATE. [Concomitant]
     Active Substance: METHOTREXATE
     Indication: PROPHYLAXIS AGAINST GRAFT VERSUS HOST DISEASE
     Dosage: 15 MG/M2 ON DAY 1
  5. FILGRASTIM [Concomitant]
     Active Substance: FILGRASTIM
     Indication: PROPHYLAXIS AGAINST GRAFT VERSUS HOST DISEASE
     Dosage: 300 UG DAILY; DAY 16, 17 AND 19
  6. METHOTREXATE. [Concomitant]
     Active Substance: METHOTREXATE
     Indication: PROPHYLAXIS AGAINST GRAFT VERSUS HOST DISEASE
     Dosage: 10 MG/M2 ON DAYS 3, 6 AND 11
  7. THIOTEPA. [Suspect]
     Active Substance: THIOTEPA
     Indication: STEM CELL TRANSPLANT
     Dosage: 10 MG/KG; DAY -4
  8. TACROLIMUS. [Concomitant]
     Active Substance: TACROLIMUS
     Indication: PROPHYLAXIS AGAINST GRAFT VERSUS HOST DISEASE
     Dosage: 2 DOSAGES 2 MG DAILY
  9. MYCOPHENOLATE MOFETIL. [Concomitant]
     Active Substance: MYCOPHENOLATE MOFETIL
     Indication: PROPHYLAXIS AGAINST GRAFT VERSUS HOST DISEASE
     Dosage: 3 DOSAGES 915 MG DAILY

REACTIONS (5)
  - Pyrexia [Unknown]
  - Adenovirus infection [Unknown]
  - Diarrhoea [Unknown]
  - Acute graft versus host disease [Unknown]
  - Parvovirus B19 infection [Unknown]
